FAERS Safety Report 21478233 (Version 1)
Quarter: 2022Q4

REPORT INFORMATION
  Report Type: Spontaneous
  Country: US (occurrence: None)
  Receive Date: 20221018
  Receipt Date: 20221018
  Transmission Date: 20230113
  Serious: No
  Sender: FDA-Public Use
  Company Number: None

PATIENT
  Age: 28 Year
  Sex: Female
  Weight: 45 kg

DRUGS (2)
  1. DRAMAMINE [Suspect]
     Active Substance: DIMENHYDRINATE
     Indication: Motion sickness
     Dosage: FREQUENCY : AS NEEDED;?
     Route: 048
     Dates: start: 20221018, end: 20221018
  2. IUD NOS [Concomitant]
     Active Substance: COPPER OR LEVONORGESTREL

REACTIONS (1)
  - Tachycardia [None]

NARRATIVE: CASE EVENT DATE: 20221018
